FAERS Safety Report 13199761 (Version 1)
Quarter: 2017Q1

REPORT INFORMATION
  Report Type: Spontaneous
  Country: BR (occurrence: BR)
  Receive Date: 20170208
  Receipt Date: 20170208
  Transmission Date: 20170428
  Serious: Yes (Disabling)
  Sender: FDA-Public Use
  Company Number: BR-GALDERMA-BR17000799

PATIENT
  Age: 3 Year
  Sex: Female

DRUGS (1)
  1. CETAPHIL MOISTURIZING CREAM [Suspect]
     Active Substance: COSMETICS
     Indication: DRY SKIN PROPHYLAXIS
     Route: 061

REACTIONS (10)
  - Urinary retention [Unknown]
  - Activities of daily living impaired [Unknown]
  - Dry skin [Unknown]
  - Skin exfoliation [Unknown]
  - Gait disturbance [Unknown]
  - Skin warm [Unknown]
  - Condition aggravated [Unknown]
  - Skin haemorrhage [Unknown]
  - Genital burning sensation [Unknown]
  - Dermatitis [Unknown]
